FAERS Safety Report 10917402 (Version 1)
Quarter: 2015Q1

REPORT INFORMATION
  Report Type: Report from Study
  Country: US (occurrence: US)
  Receive Date: 20150316
  Receipt Date: 20150316
  Transmission Date: 20150721
  Serious: Yes (Hospitalization)
  Sender: FDA-Public Use
  Company Number: US-SANOFI-AVENTIS-2013SA086586

PATIENT
  Age: 59 Year
  Sex: Female

DRUGS (2)
  1. AUBAGIO [Suspect]
     Active Substance: TERIFLUNOMIDE
     Indication: MULTIPLE SCLEROSIS
     Route: 048
     Dates: start: 20130823, end: 20141001
  2. AMPYRA [Concomitant]
     Active Substance: DALFAMPRIDINE
     Indication: GAIT DISTURBANCE

REACTIONS (9)
  - Joint dislocation [Unknown]
  - Swelling face [Unknown]
  - Dysuria [Unknown]
  - Fall [Unknown]
  - Hand fracture [Unknown]
  - Pneumonia [Recovered/Resolved]
  - Hypoacusis [Unknown]
  - Malaise [Unknown]
  - Joint swelling [Unknown]

NARRATIVE: CASE EVENT DATE: 20130823
